FAERS Safety Report 8314624-2 (Version None)
Quarter: 2012Q2

REPORT INFORMATION
  Report Type: 
  Country: None (occurrence: None)
  Receive Date: 20120426
  Receipt Date: 20120418
  Transmission Date: 20120825
  Serious: Yes (Hospitalization)
  Sender: FDA-Public Use
  Company Number: JP-ROCHE-688600

PATIENT
  Sex: Male
  Weight: 57 kg

DRUGS (25)
  1. PREDNISOLONE [Suspect]
     Route: 048
     Dates: start: 20091024, end: 20091106
  2. ALENDRONATE SODIUM [Concomitant]
     Route: 048
     Dates: start: 20091026, end: 20100201
  3. PREDNISOLONE [Suspect]
     Route: 048
     Dates: start: 20100302, end: 20100315
  4. AUGMENTIN '125' [Concomitant]
     Route: 048
     Dates: start: 20100208, end: 20100216
  5. PREDNISOLONE [Suspect]
     Route: 048
     Dates: start: 20100105, end: 20100118
  6. METHYLPREDNISOLONE [Suspect]
     Indication: CASTLEMAN'S DISEASE
     Route: 041
     Dates: start: 20091010, end: 20091012
  7. PREDNISOLONE [Suspect]
     Indication: CASTLEMAN'S DISEASE
     Route: 048
     Dates: start: 20091013, end: 20091016
  8. PREDNISOLONE [Suspect]
     Route: 048
     Dates: start: 20091016, end: 20091023
  9. PREDNISOLONE [Suspect]
     Route: 048
     Dates: start: 20091107, end: 20091120
  10. ALENDRONATE SODIUM [Concomitant]
     Route: 048
     Dates: start: 20100817, end: 20101207
  11. ACTEMRA [Suspect]
     Dosage: ACTION TAKEN: CONTINUED
     Route: 041
  12. PREDNISOLONE [Suspect]
     Route: 048
     Dates: start: 20091222, end: 20100104
  13. PREDNISOLONE [Suspect]
     Route: 048
     Dates: start: 20100216, end: 20100301
  14. PREDNISOLONE [Suspect]
     Dosage: FORM: PERORAL AGENT
     Route: 048
     Dates: start: 20100316, end: 20110103
  15. PREDNISOLONE [Suspect]
     Route: 048
  16. GLAKAY [Concomitant]
     Route: 048
     Dates: start: 20100216, end: 20100817
  17. PREDNISOLONE [Suspect]
     Route: 048
     Dates: start: 20091121, end: 20091204
  18. PREDNISOLONE [Suspect]
     Indication: CASTLEMAN'S DISEASE
     Dosage: FORM: PERORAL AGENT
     Route: 048
     Dates: start: 20100302, end: 20100315
  19. AMOXICILLIN [Concomitant]
     Dosage: FORM: PER ORAL AGENT
     Route: 048
     Dates: start: 20100316, end: 20100322
  20. ACTEMRA [Suspect]
     Indication: CASTLEMAN'S DISEASE
     Route: 041
     Dates: start: 20091209, end: 20100105
  21. PREDNISOLONE [Suspect]
     Route: 048
     Dates: start: 20091205, end: 20091221
  22. PREDNISOLONE [Suspect]
     Route: 048
     Dates: start: 20100202, end: 20100215
  23. SULFAMETHOXAZOLE AND TRIMETHOPRIM [Concomitant]
     Route: 048
  24. PREDNISOLONE [Suspect]
     Route: 048
     Dates: start: 20100119, end: 20100201
  25. RABEPRAZOLE SODIUM [Concomitant]
     Route: 048

REACTIONS (2)
  - MENINGIOMA [None]
  - GINGIVITIS [None]
